FAERS Safety Report 6292384-7 (Version None)
Quarter: 2009Q3

REPORT INFORMATION
  Report Type: 
  Country: None (occurrence: None)
  Receive Date: 20090731
  Receipt Date: 20090727
  Transmission Date: 20100115
  Serious: Yes (Death, Hospitalization)
  Sender: FDA-Public Use
  Company Number: AT-TEVA-203596ISR

PATIENT
  Sex: Male

DRUGS (6)
  1. MYCOPHENOLIC ACID [Suspect]
     Indication: RENAL TRANSPLANT
     Dates: start: 20070515, end: 20080101
  2. MYCOPHENOLIC ACID [Concomitant]
  3. BELATACEPT [Suspect]
     Indication: RENAL TRANSPLANT
     Route: 042
     Dates: start: 20070515, end: 20071127
  4. PREDNISOLONE [Suspect]
     Dates: start: 20070517, end: 20090623
  5. BASILIXIMAB [Suspect]
     Indication: RENAL TRANSPLANT
     Dates: start: 20070515, end: 20070519
  6. SIROLIMUS [Concomitant]
     Dates: start: 20080327, end: 20090623

REACTIONS (5)
  - B-CELL LYMPHOMA [None]
  - COGNITIVE DISORDER [None]
  - HYPOGLYCAEMIA [None]
  - KIDNEY TRANSPLANT REJECTION [None]
  - MALNUTRITION [None]
